FAERS Safety Report 4809093-0 (Version None)
Quarter: 2005Q4

REPORT INFORMATION
  Report Type: 
  Country: None (occurrence: None)
  Receive Date: 20051021
  Receipt Date: 20051021
  Transmission Date: 20060501
  Serious: No
  Sender: FDA-Public Use
  Company Number: None

PATIENT
  Sex: Male
  Weight: 77.1115 kg

DRUGS (1)
  1. OXYMETAZOLINE HCL [Suspect]
     Dosage: SEE IMAGE

REACTIONS (4)
  - BLOOD PRESSURE SYSTOLIC INCREASED [None]
  - HEADACHE [None]
  - NASAL DISCOMFORT [None]
  - PHARMACEUTICAL PRODUCT COMPLAINT [None]
